FAERS Safety Report 8844458 (Version 1)
Quarter: 2012Q4

REPORT INFORMATION
  Report Type: Spontaneous
  Country: US (occurrence: None)
  Receive Date: 20121016
  Receipt Date: 20121016
  Transmission Date: 20130627
  Serious: Yes (Hospitalization)
  Sender: FDA-Public Use
  Company Number: None

PATIENT
  Age: 77 Year
  Sex: Female
  Weight: 81.7 kg

DRUGS (19)
  1. PLAVIX [Suspect]
     Indication: STENT PLACEMENT
     Dosage: chronic
     Route: 048
  2. ASA [Suspect]
     Dosage: chronic
     Route: 048
  3. KCL [Concomitant]
  4. PAXIL [Concomitant]
  5. FERROUS SULFATE [Concomitant]
  6. MEGESTROL [Concomitant]
  7. METFORMIN [Concomitant]
  8. CARVEDILOL [Concomitant]
  9. LASIX [Concomitant]
  10. DESITIN CREAM [Concomitant]
  11. LOMOTIL [Concomitant]
  12. PERCOCET [Concomitant]
  13. MIRALAX [Concomitant]
  14. DUONEB [Concomitant]
  15. XANAX [Concomitant]
  16. HUMALOG [Concomitant]
  17. PROTONIX [Concomitant]
  18. ALBUTEROL [Concomitant]
  19. X-VIATE [Concomitant]

REACTIONS (3)
  - Gastrointestinal haemorrhage [None]
  - Chest pain [None]
  - Anaemia [None]
